FAERS Safety Report 23324880 (Version 1)
Quarter: 2023Q4

REPORT INFORMATION
  Report Type: Spontaneous
  Country: US (occurrence: US)
  Receive Date: 20231221
  Receipt Date: 20231221
  Transmission Date: 20240110
  Serious: Yes (Death, Life-Threatening)
  Sender: FDA-Public Use
  Company Number: US-DRL-USA-LIT/USA/23/0032293

PATIENT
  Age: 34 Year
  Sex: Male

DRUGS (4)
  1. DEXAMETHASONE [Suspect]
     Active Substance: DEXAMETHASONE
     Indication: Haemophagocytic lymphohistiocytosis
  2. CYCLOSPORINE [Suspect]
     Active Substance: CYCLOSPORINE
     Indication: Haemophagocytic lymphohistiocytosis
  3. ELTROMBOPAG [Suspect]
     Active Substance: ELTROMBOPAG
     Indication: Haemophagocytic lymphohistiocytosis
  4. THYMOGLOBULIN [Concomitant]
     Active Substance: LAPINE T-LYMPHOCYTE IMMUNE GLOBULIN
     Indication: Prophylaxis
     Dates: start: 202201

REACTIONS (2)
  - Haemophagocytic lymphohistiocytosis [Fatal]
  - Drug ineffective for unapproved indication [Unknown]
